FAERS Safety Report 15454348 (Version 1)
Quarter: 2018Q3

REPORT INFORMATION
  Report Type: Spontaneous
  Country: US (occurrence: US)
  Receive Date: 20180927
  Receipt Date: 20180927
  Transmission Date: 20181010
  Serious: Yes (Hospitalization)
  Sender: FDA-Public Use
  Company Number: None

PATIENT
  Age: 66 Year
  Sex: Female
  Weight: 86.6 kg

DRUGS (2)
  1. ABRAXANE [Suspect]
     Active Substance: PACLITAXEL
     Dosage: STRENGTH 10MG/KG
     Route: 042
     Dates: start: 20180626, end: 20180828
  2. DURVALUMAB. [Suspect]
     Active Substance: DURVALUMAB
     Route: 042
     Dates: start: 20180626, end: 20180821

REACTIONS (2)
  - Pulmonary embolism [None]
  - Atrial fibrillation [None]

NARRATIVE: CASE EVENT DATE: 20180924
